FAERS Safety Report 7944919-3 (Version None)
Quarter: 2011Q4

REPORT INFORMATION
  Report Type: 
  Country: None (occurrence: None)
  Receive Date: 20111129
  Receipt Date: 20111116
  Transmission Date: 20120403
  Serious: Yes (Hospitalization)
  Sender: FDA-Public Use
  Company Number: PHFR2011GB006665

PATIENT
  Age: 30 Year
  Sex: Female

DRUGS (9)
  1. SERATIN [Concomitant]
     Indication: SLEEP DISORDER
  2. TEGRETOL [Suspect]
     Dosage: 1000 MG/DAY
     Route: 048
     Dates: start: 20050401
  3. TEGRETOL [Suspect]
     Indication: BIPOLAR DISORDER
     Dosage: 1200 MG/DAY
     Route: 048
     Dates: start: 20050401
  4. TOPAMAX [Concomitant]
  5. VALPROATE SODIUM [Suspect]
  6. QUETIAPINE [Concomitant]
     Indication: PSYCHOTIC BEHAVIOUR
  7. TEGRETOL [Suspect]
     Dosage: 800 MG/DAY
     Route: 048
     Dates: start: 20050401
  8. TRAMADOL HCL [Concomitant]
     Indication: PAIN
  9. CLONAZEPAM [Concomitant]
     Indication: SLEEP DISORDER
     Dosage: 3 G, UNK

REACTIONS (10)
  - DIZZINESS [None]
  - NAUSEA [None]
  - DRY MOUTH [None]
  - MALAISE [None]
  - MANIA [None]
  - FALL [None]
  - ACCIDENT [None]
  - INSOMNIA [None]
  - HEADACHE [None]
  - FEELING ABNORMAL [None]
